FAERS Safety Report 14791737 (Version 2)
Quarter: 2018Q2

REPORT INFORMATION
  Report Type: Spontaneous
  Country: JP (occurrence: JP)
  Receive Date: 20180423
  Receipt Date: 20180511
  Transmission Date: 20180711
  Serious: Yes (Death, Hospitalization)
  Sender: FDA-Public Use
  Company Number: JP-JNJFOC-20180427317

PATIENT
  Age: 73 Year
  Sex: Female
  Weight: 49.8 kg

DRUGS (9)
  1. DOXORUBICIN HYDROCHLORIDE. [Suspect]
     Active Substance: DOXORUBICIN HYDROCHLORIDE
     Indication: MALIGNANT PERITONEAL NEOPLASM
     Route: 042
     Dates: start: 20171228, end: 20171228
  2. FAMOTIDINE. [Concomitant]
     Active Substance: FAMOTIDINE
     Indication: GASTRITIS PROPHYLAXIS
     Route: 048
     Dates: start: 20171228, end: 20180220
  3. DOXORUBICIN HYDROCHLORIDE. [Suspect]
     Active Substance: DOXORUBICIN HYDROCHLORIDE
     Indication: MALIGNANT PERITONEAL NEOPLASM
     Route: 042
     Dates: start: 20180128, end: 20180217
  4. BETAMETHASONE. [Suspect]
     Active Substance: BETAMETHASONE
     Indication: ASCITES
     Route: 048
     Dates: start: 20171228, end: 20180125
  5. LASIX [Concomitant]
     Active Substance: FUROSEMIDE
     Indication: ASCITES
     Route: 048
     Dates: start: 20171228, end: 20180125
  6. LASIX [Concomitant]
     Active Substance: FUROSEMIDE
     Indication: ASCITES
     Route: 048
     Dates: start: 20180126, end: 20180220
  7. BETAMETHASONE. [Suspect]
     Active Substance: BETAMETHASONE
     Indication: ASCITES
     Route: 048
     Dates: start: 20180209, end: 20180220
  8. BETAMETHASONE. [Suspect]
     Active Substance: BETAMETHASONE
     Indication: ASCITES
     Route: 048
     Dates: start: 20180126, end: 20180208
  9. XARELTO [Concomitant]
     Active Substance: RIVAROXABAN
     Indication: PERIPHERAL VENOUS DISEASE
     Route: 048
     Dates: start: 20170223, end: 20180220

REACTIONS (4)
  - Bone marrow failure [Fatal]
  - Product use in unapproved indication [Unknown]
  - Off label use [Unknown]
  - Pneumocystis jirovecii pneumonia [Fatal]

NARRATIVE: CASE EVENT DATE: 20171228
